FAERS Safety Report 4911081-0 (Version None)
Quarter: 2006Q1

REPORT INFORMATION
  Report Type: 
  Country: None (occurrence: None)
  Receive Date: 20060209
  Receipt Date: 20060127
  Transmission Date: 20060701
  Serious: Yes (Death)
  Sender: FDA-Public Use
  Company Number: 2006015247

PATIENT
  Age: 53 Year
  Sex: Female

DRUGS (4)
  1. CAMPTOSAR [Suspect]
     Indication: COLON CANCER METASTATIC
     Dosage: 180 MG/M2 (180 MG/M2), INTRAVENOUS
     Route: 042
     Dates: start: 20051110, end: 20051110
  2. FLUOROURACIL [Suspect]
     Indication: COLON CANCER METASTATIC
     Dosage: SEE IMAGE
     Route: 042
     Dates: start: 20051110, end: 20051110
  3. FOLIC ACID [Suspect]
     Indication: COLON CANCER METASTATIC
     Dosage: 400 MG/M2 (400 MG/M2) INTRAVENOUS
     Route: 042
     Dates: start: 20051110, end: 20051110
  4. AVASTIN [Suspect]
     Indication: COLON CANCER METASTATIC
     Dosage: 240 MG (INTRAVENOUS)
     Route: 042
     Dates: start: 20051110, end: 20051110

REACTIONS (10)
  - ASTHENIA [None]
  - CIRCULATORY COLLAPSE [None]
  - DISSEMINATED INTRAVASCULAR COAGULATION [None]
  - FIBROSIS [None]
  - GASTROINTESTINAL DISORDER [None]
  - HAEMATOMA [None]
  - PLATELET COUNT DECREASED [None]
  - RECTAL HAEMORRHAGE [None]
  - SHOCK [None]
  - SHOCK HAEMORRHAGIC [None]
